FAERS Safety Report 14692832 (Version 2)
Quarter: 2018Q2

REPORT INFORMATION
  Report Type: Spontaneous
  Country: US (occurrence: US)
  Receive Date: 20180329
  Receipt Date: 20180511
  Transmission Date: 20180711
  Serious: Yes (Other)
  Sender: FDA-Public Use
  Company Number: US-TESARO INC.-TS50-00272-2018USA

PATIENT
  Sex: Male

DRUGS (2)
  1. ROLAPITANT HYDROCHLORIDE [Suspect]
     Active Substance: ROLAPITANT
     Indication: VOMITING
  2. ROLAPITANT HYDROCHLORIDE [Suspect]
     Active Substance: ROLAPITANT
     Indication: NAUSEA
     Route: 048
     Dates: start: 20171106

REACTIONS (13)
  - Weight decreased [Unknown]
  - Red blood cell count decreased [Unknown]
  - Platelet count decreased [Unknown]
  - Paraesthesia oral [Unknown]
  - Fatigue [Unknown]
  - Iron deficiency anaemia [Unknown]
  - Clostridium difficile infection [Unknown]
  - Muscle twitching [Unknown]
  - Hypoaesthesia [Unknown]
  - Blood pressure increased [Unknown]
  - Asthenia [Unknown]
  - Blood albumin decreased [Unknown]
  - Anaemia vitamin B12 deficiency [Unknown]
